FAERS Safety Report 21961641 (Version 2)
Quarter: 2023Q1

REPORT INFORMATION
  Report Type: Report from Study
  Country: US (occurrence: US)
  Receive Date: 20230207
  Receipt Date: 20230306
  Transmission Date: 20230418
  Serious: Yes (Other)
  Sender: FDA-Public Use
  Company Number: US-ABBVIE-4294528

PATIENT
  Age: 56 Year
  Sex: Male

DRUGS (2)
  1. SKYRIZI [Suspect]
     Active Substance: RISANKIZUMAB-RZAA
     Indication: Psoriatic arthropathy
     Route: 058
     Dates: start: 20190603
  2. SKYRIZI [Suspect]
     Active Substance: RISANKIZUMAB-RZAA
     Indication: Psoriasis
     Route: 058

REACTIONS (7)
  - Surgery [Not Recovered/Not Resolved]
  - Spinal operation [Recovered/Resolved]
  - Back injury [Unknown]
  - Intervertebral disc protrusion [Unknown]
  - Hypoaesthesia [Unknown]
  - Neuralgia [Unknown]
  - Pain [Unknown]

NARRATIVE: CASE EVENT DATE: 20220101
